FAERS Safety Report 9428311 (Version 1)
Quarter: 2013Q3

REPORT INFORMATION
  Report Type: Report from Study
  Country: US (occurrence: US)
  Receive Date: 20130730
  Receipt Date: 20130730
  Transmission Date: 20140515
  Serious: No
  Sender: FDA-Public Use
  Company Number: US-ABBOTT-12P-163-0964669-00

PATIENT
  Sex: Female

DRUGS (2)
  1. NIASPAN (COATED) 500MG [Suspect]
     Indication: PRODUCT USED FOR UNKNOWN INDICATION
     Dosage: 500 MG AT BEDTIME
     Dates: start: 20120505
  2. NIASPAN (COATED) 500MG [Suspect]
     Dosage: 500 MG AT BEDTIME
     Dates: end: 20120805

REACTIONS (6)
  - Fatigue [Not Recovered/Not Resolved]
  - Flushing [Not Recovered/Not Resolved]
  - Pruritus [Not Recovered/Not Resolved]
  - Feeling hot [Not Recovered/Not Resolved]
  - Erythema [Not Recovered/Not Resolved]
  - Chromaturia [Not Recovered/Not Resolved]
